FAERS Safety Report 9222692 (Version 1)
Quarter: 2013Q1

REPORT INFORMATION
  Report Type: Spontaneous
  Country: US (occurrence: US)
  Receive Date: 20120914
  Receipt Date: 20120914
  Transmission Date: 20140127
  Serious: Yes (Hospitalization)
  Sender: FDA-Public Use
  Company Number: JPI-P-021250

PATIENT
  Age: 59 Year
  Sex: Female
  Weight: 86.18 kg

DRUGS (7)
  1. XYREM (500 MG/ML SOLUTION)(SODIUM OXYBATE) [Suspect]
     Indication: FIBROMYALGIA
     Dosage: 2 DOSES OF 4.5 GM TAKEN NIGHTLY/AT BEDTIME.
     Route: 048
     Dates: start: 20120427, end: 20120511
  2. LEVOTHYROXINE [Concomitant]
  3. ROSUVASTATIN CALCIUM [Concomitant]
  4. BRINZOLAMIDE [Concomitant]
  5. VITAMIN D [Concomitant]
  6. CALCIUM [Concomitant]
  7. MULTIVITAMIN [Concomitant]

REACTIONS (20)
  - Hallucination [None]
  - Confusional state [None]
  - Dyspnoea [None]
  - Decreased appetite [None]
  - Tremor [None]
  - Chills [None]
  - Palpitations [None]
  - Swelling face [None]
  - Fatigue [None]
  - Hallucination, visual [None]
  - Food craving [None]
  - Local swelling [None]
  - Night sweats [None]
  - Pain in extremity [None]
  - Nausea [None]
  - Pollakiuria [None]
  - Dizziness [None]
  - Sensation of heaviness [None]
  - Dysgeusia [None]
  - Pain [None]
